FAERS Safety Report 19079068 (Version 5)
Quarter: 2022Q1

REPORT INFORMATION
  Report Type: Spontaneous
  Country: US (occurrence: US)
  Receive Date: 20210331
  Receipt Date: 20220224
  Transmission Date: 20220423
  Serious: No
  Sender: FDA-Public Use
  Company Number: US-PFIZER INC-2021299443

PATIENT
  Age: 66 Year
  Sex: Female
  Weight: 90.72 kg

DRUGS (15)
  1. XELJANZ XR [Suspect]
     Active Substance: TOFACITINIB CITRATE
     Indication: Rheumatoid arthritis
     Dosage: 11 MG, 1X/DAY
     Route: 048
     Dates: start: 20210306, end: 202103
  2. XELJANZ XR [Suspect]
     Active Substance: TOFACITINIB CITRATE
     Dosage: 11 MG, 1X/DAY
     Route: 048
     Dates: start: 20210313
  3. XELJANZ XR [Suspect]
     Active Substance: TOFACITINIB CITRATE
     Dosage: 11 MG
     Route: 048
  4. PREDNISONE [Concomitant]
     Active Substance: PREDNISONE
     Dosage: 5 MG
     Dates: start: 20210420
  5. OMEPRAZOLE [Concomitant]
     Active Substance: OMEPRAZOLE
     Indication: Gastric disorder
     Dosage: 20 MG, 2X/DAY
     Route: 048
     Dates: start: 2016
  6. SYNTHROID [Concomitant]
     Active Substance: LEVOTHYROXINE SODIUM
     Indication: Hypothyroidism
     Dosage: 100 UG, DAILY
     Route: 048
     Dates: start: 2001
  7. CELEBREX [Concomitant]
     Active Substance: CELECOXIB
     Indication: Rheumatoid arthritis
     Dosage: 200 MG, 2X/DAY  (STARTED TAKING WHEN IT 1ST CAME OUT)
     Route: 048
  8. PRISTIQ EXTENDED-RELEASE [Concomitant]
     Active Substance: DESVENLAFAXINE SUCCINATE
     Indication: Depression
     Dosage: 25 MG (BACK AND FORTH BETWEEN 25MG AND 50MG)
     Dates: start: 2020, end: 2021
  9. PRISTIQ EXTENDED-RELEASE [Concomitant]
     Active Substance: DESVENLAFAXINE SUCCINATE
     Indication: Anxiety
     Dosage: 50 MG (BACK AND FORTH BETWEEN 25MG AND 50MG)
     Route: 048
     Dates: start: 202103
  10. PRAVASTATIN [Concomitant]
     Active Substance: PRAVASTATIN
     Indication: Blood cholesterol abnormal
     Dosage: 20 MG, DAILY (STARTED ABOUT 10 YEARS AGO)
     Route: 048
  11. ATENOLOL [Concomitant]
     Active Substance: ATENOLOL
     Indication: Hypertension
     Dosage: 25 MG, 1X/DAY (STARTED TAKING ABOUT 10 YEARS AGO)
     Route: 048
  12. LEVOCETIRIZINE [Concomitant]
     Active Substance: LEVOCETIRIZINE
     Indication: Hypersensitivity
     Dosage: 5 MG, 1X/DAY (STARTED TAKING ABOUT 6 MONTHS AGO)
     Route: 048
     Dates: start: 2020
  13. CLONAZEPAM [Concomitant]
     Active Substance: CLONAZEPAM
     Indication: Anxiety
     Dosage: 1 MG (1-2 TIME A DAY AS NEEDED,STARTED YEARS AGO)
     Route: 048
  14. ENBREL [Concomitant]
     Active Substance: ETANERCEPT
     Dosage: UNK (USED FOR FOR 21 YEARS )
  15. MODERNA COVID-19 VACCINE [Concomitant]
     Active Substance: ELASOMERAN
     Dosage: UNK, SINGLE

REACTIONS (8)
  - Drug ineffective [Unknown]
  - Headache [Unknown]
  - Flatulence [Unknown]
  - Malaise [Unknown]
  - Insomnia [Unknown]
  - Eating disorder [Unknown]
  - Anxiety [Unknown]
  - Gastric disorder [Unknown]

NARRATIVE: CASE EVENT DATE: 20210101
